FAERS Safety Report 11145586 (Version 1)
Quarter: 2015Q2

REPORT INFORMATION
  Report Type: Spontaneous
  Country: US (occurrence: None)
  Receive Date: 20150526
  Receipt Date: 20150526
  Transmission Date: 20150821
  Serious: Yes (Hospitalization, Other)
  Sender: FDA-Public Use
  Company Number: DEP_02900_2015

PATIENT
  Age: 46 Year
  Sex: Female
  Weight: 85.28 kg

DRUGS (3)
  1. AMBIEN [Concomitant]
     Active Substance: ZOLPIDEM TARTRATE
  2. NUCYNTA [Suspect]
     Active Substance: TAPENTADOL HYDROCHLORIDE
     Indication: PAIN
     Route: 048
     Dates: start: 201412
  3. SYNTHROID [Concomitant]
     Active Substance: LEVOTHYROXINE SODIUM

REACTIONS (7)
  - Ankle fracture [None]
  - Weight increased [None]
  - Drug effect decreased [None]
  - Rotator cuff syndrome [None]
  - Ligament disorder [None]
  - Back injury [None]
  - Hospitalisation [None]

NARRATIVE: CASE EVENT DATE: 201412
